FAERS Safety Report 10019806 (Version 3)
Quarter: 2014Q2

REPORT INFORMATION
  Report Type: Spontaneous
  Country: US (occurrence: US)
  Receive Date: 20140318
  Receipt Date: 20140618
  Transmission Date: 20141212
  Serious: No
  Sender: FDA-Public Use
  Company Number: US-GALDERMA-US13004054

PATIENT
  Age: 21 Year
  Sex: Female

DRUGS (3)
  1. MIRVASO (BRIMONIDINE) TOPICAL GEL, 0.33% [Suspect]
     Indication: ROSACEA
     Dosage: 0.33%
     Route: 061
     Dates: start: 20131130, end: 20131201
  2. ATIVAN [Concomitant]
     Route: 048
     Dates: start: 2012
  3. TRI-SPRINTEC [Concomitant]
     Route: 048
     Dates: start: 2006

REACTIONS (7)
  - Rebound effect [Recovered/Resolved]
  - Swelling face [Not Recovered/Not Resolved]
  - Skin sensitisation [Recovered/Resolved]
  - Erythema [Recovered/Resolved]
  - Flushing [Not Recovered/Not Resolved]
  - Pain of skin [Recovered/Resolved]
  - Off label use [Recovered/Resolved]
